FAERS Safety Report 9095433 (Version 1)
Quarter: 2013Q1

REPORT INFORMATION
  Report Type: Report from Study
  Country: US (occurrence: US)
  Receive Date: 20130131
  Receipt Date: 20130131
  Transmission Date: 20140127
  Serious: Yes (Hospitalization)
  Sender: FDA-Public Use
  Company Number: US-ABBOTT-12P-163-1007479-00

PATIENT
  Sex: Female

DRUGS (2)
  1. HUMIRA [Suspect]
     Indication: PRODUCT USED FOR UNKNOWN INDICATION
     Dosage: 2 EACH
     Route: 050
     Dates: start: 201208, end: 201208
  2. HUMIRA [Suspect]
     Route: 050

REACTIONS (1)
  - Clostridium difficile infection [Recovered/Resolved]
